FAERS Safety Report 15227649 (Version 2)
Quarter: 2018Q4

REPORT INFORMATION
  Report Type: Spontaneous
  Country: US (occurrence: US)
  Receive Date: 20180801
  Receipt Date: 20181029
  Transmission Date: 20190204
  Serious: Yes (Death, Hospitalization)
  Sender: FDA-Public Use
  Company Number: US-JNJFOC-20180737481

PATIENT
  Age: 73 Year
  Sex: Female

DRUGS (3)
  1. XARELTO [Suspect]
     Active Substance: RIVAROXABAN
     Indication: THROMBOSIS PROPHYLAXIS
     Dosage: INVARYING DOSES OF 15 MG AND 20 MG
     Route: 048
     Dates: start: 20130925, end: 20160825
  2. XARELTO [Suspect]
     Active Substance: RIVAROXABAN
     Indication: ATRIAL FIBRILLATION
     Dosage: INVARYING DOSES OF 15 MG AND 20 MG
     Route: 048
     Dates: start: 20130925, end: 20160825
  3. XARELTO [Suspect]
     Active Substance: RIVAROXABAN
     Indication: CEREBROVASCULAR ACCIDENT PROPHYLAXIS
     Dosage: INVARYING DOSES OF 15 MG AND 20 MG
     Route: 048
     Dates: start: 20130925, end: 20160825

REACTIONS (3)
  - Myocardial infarction [Fatal]
  - Gastrointestinal haemorrhage [Fatal]
  - Acute kidney injury [Fatal]

NARRATIVE: CASE EVENT DATE: 20160825
